FAERS Safety Report 8607901 (Version 5)
Quarter: 2014Q2

REPORT INFORMATION
  Report Type: Spontaneous
  Country: US (occurrence: US)
  Receive Date: 20120611
  Receipt Date: 20140422
  Transmission Date: 20141212
  Serious: Yes (Hospitalization, Disabling)
  Sender: FDA-Public Use
  Company Number: US-ASTRAZENECA-2012SE35167

PATIENT
  Age: 52 Year
  Sex: Female

DRUGS (12)
  1. NEXIUM [Suspect]
     Indication: GASTROOESOPHAGEAL REFLUX DISEASE
     Route: 048
     Dates: start: 1995, end: 20130401
  2. NEXIUM [Suspect]
     Indication: GASTROOESOPHAGEAL REFLUX DISEASE
     Route: 048
     Dates: start: 20090317
  3. NEXIUM [Suspect]
     Indication: GASTROOESOPHAGEAL REFLUX DISEASE
     Route: 048
     Dates: start: 20110202
  4. PRILOSEC [Suspect]
     Indication: GASTROOESOPHAGEAL REFLUX DISEASE
     Route: 048
  5. PREVACID [Concomitant]
     Indication: GASTROOESOPHAGEAL REFLUX DISEASE
  6. TUMS [Concomitant]
     Dosage: AS NEEDED
  7. ROLAIDS [Concomitant]
     Dosage: AS NEEDED
  8. RECLAST [Concomitant]
  9. PAXIL [Concomitant]
  10. CYMBALTA [Concomitant]
     Dates: start: 20110224
  11. IMITREX [Concomitant]
     Dates: start: 20110604
  12. PROTONIX [Concomitant]

REACTIONS (12)
  - Back pain [Unknown]
  - Drug withdrawal syndrome [Unknown]
  - Migraine [Unknown]
  - Depression [Unknown]
  - Osteoporosis [Unknown]
  - Multiple fractures [Unknown]
  - Fractured coccyx [Unknown]
  - Foot fracture [Unknown]
  - Calcium deficiency [Unknown]
  - Arthritis [Unknown]
  - Limb injury [Unknown]
  - Drug hypersensitivity [Unknown]
